FAERS Safety Report 10148876 (Version 3)
Quarter: 2014Q2

REPORT INFORMATION
  Report Type: Spontaneous
  Country: BR (occurrence: BR)
  Receive Date: 20140502
  Receipt Date: 20140516
  Transmission Date: 20141212
  Serious: Yes (Other)
  Sender: FDA-Public Use
  Company Number: BR-PFIZER INC-2014120872

PATIENT
  Age: 60 Year
  Sex: Female

DRUGS (4)
  1. AMIODARONE HYDROCHLORIDE [Suspect]
     Indication: TACHYCARDIA
     Dosage: 1 DOSAGE FORM; 200MG TABLETS AT DOSE OF MONDAY TO FRIDAY 1 TABLET PER DAY
     Route: 048
     Dates: start: 1988
  2. MARCOUMAR [Concomitant]
     Indication: ANTICOAGULANT THERAPY
     Dosage: UNK
  3. LAMOTRIGINE [Concomitant]
     Indication: CEREBRAL DISORDER
     Dosage: UNK
  4. PRIMID [Concomitant]
     Indication: TREMOR
     Dosage: UNK

REACTIONS (2)
  - Cerebrovascular accident [Recovered/Resolved]
  - Rash [Not Recovered/Not Resolved]
